FAERS Safety Report 5215261-9 (Version None)
Quarter: 2007Q1

REPORT INFORMATION
  Report Type: 
  Country: None (occurrence: None)
  Receive Date: 20070117
  Receipt Date: 20070108
  Transmission Date: 20070707
  Serious: Yes (Other)
  Sender: FDA-Public Use
  Company Number: GXKR2007FR00585

PATIENT
  Sex: Male

DRUGS (2)
  1. PREDNISONE [Suspect]
     Indication: PYODERMA GANGRENOSUM
     Dosage: SEE IMAGE
  2. MINOCYCLINE HCL [Suspect]
     Indication: PYODERMA GANGRENOSUM

REACTIONS (4)
  - DIABETES MELLITUS [None]
  - HYPERTENSION [None]
  - OSTEOPENIA [None]
  - PIGMENTATION DISORDER [None]
